FAERS Safety Report 16674668 (Version 2)
Quarter: 2019Q3

REPORT INFORMATION
  Report Type: Spontaneous
  Country: US (occurrence: US)
  Receive Date: 20190806
  Receipt Date: 20190903
  Transmission Date: 20191004
  Serious: No
  Sender: FDA-Public Use
  Company Number: US-ASTRAZENECA-2019SE96672

PATIENT
  Age: 46 Year
  Sex: Male
  Weight: 104.3 kg

DRUGS (13)
  1. FASENRA [Suspect]
     Active Substance: BENRALIZUMAB
     Indication: ASTHMA
     Route: 058
     Dates: start: 20190627
  2. FEXOFENADINE [Concomitant]
     Active Substance: FEXOFENADINE HYDROCHLORIDE
     Indication: HYPERSENSITIVITY
     Route: 048
  3. FLUNISOLIDE. [Concomitant]
     Active Substance: FLUNISOLIDE
     Dosage: 0.025 PERCENT , USE2 SPRAYS IN EACH NOSTRIL
     Dates: start: 20151228
  4. ALBUTEROL SULFATE. [Concomitant]
     Active Substance: ALBUTEROL SULFATE
     Indication: DYSPNOEA
     Dosage: PRIAIR HFA; USES 2 INHALATIONS EVERY 4-6 HOURS AS NEEDED.
     Route: 055
  5. ALBUTEROL IPRATROPIUM [Concomitant]
     Active Substance: ALBUTEROL\IPRATROPIUM
     Indication: DYSPNOEA
     Dosage: 2.5 MG-0.5 MG/3 ONE NEBULE FOUR TIMES DAILY AS NEEDED
  6. FASENRA [Suspect]
     Active Substance: BENRALIZUMAB
     Indication: ASTHMA
     Route: 058
     Dates: start: 20190627
  7. MONTELUKAST SODIUM. [Concomitant]
     Active Substance: MONTELUKAST SODIUM
     Route: 048
  8. ALBUTEROL SULFATE. [Concomitant]
     Active Substance: ALBUTEROL SULFATE
     Indication: WHEEZING
     Dosage: PRIAIR HFA; USES 2 INHALATIONS EVERY 4-6 HOURS AS NEEDED.
     Route: 055
  9. ALBUTEROL IPRATROPIUM [Concomitant]
     Active Substance: ALBUTEROL\IPRATROPIUM
     Indication: WHEEZING
     Dosage: 2.5 MG-0.5 MG/3 ONE NEBULE FOUR TIMES DAILY AS NEEDED
  10. EPINEPHRINE. [Concomitant]
     Active Substance: EPINEPHRINE
     Indication: ANAPHYLACTIC REACTION
     Dosage: 0.3MG/0.3 ML ; USE AS DIRECTED AS NEEDED
  11. TIOTROPIUM BROMIDE MONOHYDRATE [Concomitant]
     Active Substance: TIOTROPIUM BROMIDE MONOHYDRATE
     Dosage: 1.25 MCG/ACT; 2 INHALATIONS ONCE DAILY
  12. AZELASTINE. [Concomitant]
     Active Substance: AZELASTINE HYDROCHLORIDE
     Dosage: 0.1 PERCENT; USES 2 SPRAYS IN EACH NOSTRIL
  13. DULERA [Concomitant]
     Active Substance: FORMOTEROL FUMARATE DIHYDRATE\MOMETASONE FUROATE
     Dosage: 200UG/INHAL TWO TIMES A DAY
     Route: 055

REACTIONS (2)
  - Chills [Not Recovered/Not Resolved]
  - Pyrexia [Recovered/Resolved]

NARRATIVE: CASE EVENT DATE: 20190627
